FAERS Safety Report 25755075 (Version 1)
Quarter: 2025Q3

REPORT INFORMATION
  Report Type: Spontaneous
  Country: IN (occurrence: IN)
  Receive Date: 20250903
  Receipt Date: 20250903
  Transmission Date: 20251020
  Serious: Yes (Death, Hospitalization, Other)
  Sender: GLAND PHARMA LTD
  Company Number: IN-GLANDPHARMA-IN-2025GLNLIT01716

PATIENT
  Age: 50 Year
  Sex: Male

DRUGS (9)
  1. MEROPENEM [Suspect]
     Active Substance: MEROPENEM
     Indication: Pseudomonas infection
     Route: 065
  2. DEXAMETHASONE [Suspect]
     Active Substance: DEXAMETHASONE
     Indication: COVID-19
     Route: 042
  3. COLISTIN [Suspect]
     Active Substance: COLISTIN
     Indication: Pseudomonas infection
     Route: 065
  4. AVIBACTAM [Suspect]
     Active Substance: AVIBACTAM
     Indication: Pseudomonas infection
     Route: 065
  5. CEFTAZIDIME [Suspect]
     Active Substance: CEFTAZIDIME
     Indication: Pseudomonas infection
     Route: 065
  6. AZTREONAM [Suspect]
     Active Substance: AZTREONAM
     Indication: Pseudomonas infection
     Route: 065
  7. METHYLPREDNISOLONE [Suspect]
     Active Substance: METHYLPREDNISOLONE
     Indication: COVID-19
     Route: 042
  8. BEVACIZUMAB [Concomitant]
     Active Substance: BEVACIZUMAB
     Indication: COVID-19
     Route: 042
  9. ENOXAPARIN [Concomitant]
     Active Substance: ENOXAPARIN
     Indication: Prophylaxis
     Route: 065

REACTIONS (2)
  - Septic shock [Fatal]
  - Penicillium infection [Fatal]
